FAERS Safety Report 8022331-9 (Version None)
Quarter: 2012Q1

REPORT INFORMATION
  Report Type: 
  Country: None (occurrence: None)
  Receive Date: 20120104
  Receipt Date: 20120103
  Transmission Date: 20120608
  Serious: Yes (Hospitalization, Disabling)
  Sender: FDA-Public Use
  Company Number: AR-B.I. PHARMACEUTICALS,INC./RIDGEFIELD-2011-RA-00376RA

PATIENT
  Sex: Female
  Weight: 68 kg

DRUGS (5)
  1. PRADAXA [Suspect]
     Indication: CEREBROVASCULAR ACCIDENT PROPHYLAXIS
     Dosage: 220 MG
     Route: 048
     Dates: start: 20111101, end: 20111201
  2. ATENOLOL [Concomitant]
  3. DIGOXIN [Concomitant]
  4. PREGABALIN [Concomitant]
  5. OMEPRAZOLE [Concomitant]

REACTIONS (2)
  - DYSPHAGIA [None]
  - PUTAMEN HAEMORRHAGE [None]
